FAERS Safety Report 5060386-4 (Version None)
Quarter: 2006Q3

REPORT INFORMATION
  Report Type: 
  Country: None (occurrence: None)
  Receive Date: 20060720
  Receipt Date: 20060705
  Transmission Date: 20061208
  Serious: Yes (Death)
  Sender: FDA-Public Use
  Company Number: 060711-0000662

PATIENT
  Age: 26 Year
  Sex: Male

DRUGS (1)
  1. METHAMPHETAMINE HCL [Suspect]
     Indication: DRUG USE FOR UNKNOWN INDICATION

REACTIONS (5)
  - ARTERIAL INJURY [None]
  - DRUG TOXICITY [None]
  - EXSANGUINATION [None]
  - ISCHAEMIA [None]
  - MULTI-ORGAN DISORDER [None]
